FAERS Safety Report 8960423 (Version 1)
Quarter: 2012Q4

REPORT INFORMATION
  Report Type: 
  Country: US (occurrence: US)
  Receive Date: 20121211
  Receipt Date: 20121211
  Transmission Date: 20130627
  Serious: No
  Sender: FDA-Public Use
  Company Number: US-009507513-1212USA002468

PATIENT
  Sex: Female

DRUGS (3)
  1. PEGINTRON [Suspect]
     Indication: CHRONIC HEPATITIS C
     Dosage: 80 Microgram, qw
     Route: 058
     Dates: start: 20120824
  2. RIBASPHERE [Concomitant]
     Indication: SEASONAL ALLERGY
  3. TELAPREVIR [Concomitant]
     Indication: SEASONAL ALLERGY

REACTIONS (1)
  - Depression [Unknown]
